FAERS Safety Report 8952290 (Version 1)
Quarter: 2012Q4

REPORT INFORMATION
  Report Type: 
  Country: GB (occurrence: GB)
  Receive Date: 20121205
  Receipt Date: 20121205
  Transmission Date: 20130627
  Serious: Yes (Other)
  Sender: FDA-Public Use
  Company Number: GB-009507513-1109GBR00053B1

PATIENT
  Age: 1 Day
  Weight: 1.37 kg

DRUGS (5)
  1. ISENTRESS [Suspect]
     Route: 064
  2. TRUVADA [Concomitant]
  3. EFAVIRENZ [Concomitant]
  4. NEVIRAPINE [Concomitant]
  5. ZIDOVUDINE [Concomitant]

REACTIONS (2)
  - Premature baby [Unknown]
  - Foetal exposure during pregnancy [Unknown]
